FAERS Safety Report 8209116-5 (Version None)
Quarter: 2012Q1

REPORT INFORMATION
  Report Type: 
  Country: None (occurrence: None)
  Receive Date: 20120314
  Receipt Date: 20120306
  Transmission Date: 20120608
  Serious: Yes (Other)
  Sender: FDA-Public Use
  Company Number: US-ABBOTT-12P-163-0912476-00

PATIENT
  Sex: Female

DRUGS (1)
  1. HUMIRA [Suspect]
     Indication: CROHN'S DISEASE
     Route: 058
     Dates: start: 20120201

REACTIONS (5)
  - ANAEMIA [None]
  - RASH PRURITIC [None]
  - CROHN'S DISEASE [None]
  - FOLATE DEFICIENCY [None]
  - MALABSORPTION [None]
